FAERS Safety Report 6987555-8 (Version None)
Quarter: 2010Q3

REPORT INFORMATION
  Report Type: 
  Country: None (occurrence: None)
  Receive Date: 20100916
  Receipt Date: 20100910
  Transmission Date: 20110219
  Serious: No
  Sender: FDA-Public Use
  Company Number: US-PFIZER INC-2010114844

PATIENT
  Sex: Female

DRUGS (1)
  1. CELEBREX [Suspect]
     Indication: ARTHROPATHY
     Dosage: 200 MG, 2X/DAY
     Route: 048
     Dates: end: 20100101

REACTIONS (4)
  - CHAPPED LIPS [None]
  - DRY EYE [None]
  - LIP DRY [None]
  - NASAL DISORDER [None]
